FAERS Safety Report 21683487 (Version 1)
Quarter: 2022Q4

REPORT INFORMATION
  Report Type: Report from Study
  Country: US (occurrence: US)
  Receive Date: 20221205
  Receipt Date: 20221205
  Transmission Date: 20230113
  Serious: No
  Sender: FDA-Public Use
  Company Number: US-ABBVIE-4175546

PATIENT
  Age: 49 Year
  Sex: Male

DRUGS (1)
  1. HUMIRA [Suspect]
     Active Substance: ADALIMUMAB
     Indication: Colitis ulcerative
     Route: 058
     Dates: start: 20220902

REACTIONS (3)
  - Limb discomfort [Not Recovered/Not Resolved]
  - Paraesthesia [Recovered/Resolved]
  - Medial tibial stress syndrome [Not Recovered/Not Resolved]

NARRATIVE: CASE EVENT DATE: 20220902
